FAERS Safety Report 15857275 (Version 1)
Quarter: 2019Q1

REPORT INFORMATION
  Report Type: Other
  Country: US (occurrence: US)
  Receive Date: 20190123
  Receipt Date: 20190123
  Transmission Date: 20190417
  Serious: Yes (Hospitalization)
  Sender: FDA-Public Use
  Company Number: US-APPCO PHARMA LLC-2061605

PATIENT
  Age: 49 Year
  Sex: Male

DRUGS (9)
  1. BUPROPION. [Interacting]
     Active Substance: BUPROPION
     Route: 065
  2. BUPIVACAINE. [Interacting]
     Active Substance: BUPIVACAINE
     Route: 065
  3. HALOPERIDOL. [Interacting]
     Active Substance: HALOPERIDOL
     Route: 065
  4. PROPOFOL. [Interacting]
     Active Substance: PROPOFOL
     Route: 065
  5. FLUOXETINE [Suspect]
     Active Substance: FLUOXETINE HYDROCHLORIDE
     Indication: MENTAL DISORDER
     Route: 065
  6. TRAZODONE [Interacting]
     Active Substance: TRAZODONE HYDROCHLORIDE
     Route: 065
  7. GABAPENTIN. [Interacting]
     Active Substance: GABAPENTIN
     Route: 065
  8. DANTROLENE. [Interacting]
     Active Substance: DANTROLENE SODIUM
     Route: 065
  9. MIDAZOLAM [Interacting]
     Active Substance: MIDAZOLAM HYDROCHLORIDE
     Route: 065

REACTIONS (4)
  - Autonomic nervous system imbalance [Recovering/Resolving]
  - Drug interaction [Recovering/Resolving]
  - Mental status changes [Recovering/Resolving]
  - Serotonin syndrome [Recovering/Resolving]
